FAERS Safety Report 4269214-8 (Version None)
Quarter: 2004Q1

REPORT INFORMATION
  Report Type: 
  Country: None (occurrence: None)
  Receive Date: 20040108
  Receipt Date: 20031224
  Transmission Date: 20041129
  Serious: Yes (Death)
  Sender: FDA-Public Use
  Company Number: 2003-BP-10827NB

PATIENT
  Age: 97 Year
  Sex: Female

DRUGS (8)
  1. MICARDIS [Suspect]
     Indication: HYPERTENSION
     Dosage: 40 MG PO
     Route: 048
     Dates: start: 20031127
  2. LYSOZYME CHLORIDE [Concomitant]
  3. NORFLOXACIN [Concomitant]
  4. LINCOMYCIN HYDROCHLORIDE (LINCOMYCIN HYDROCHLORIDE) [Concomitant]
  5. VITAMIN B1 TAB [Concomitant]
  6. VITAMIN B2 (RIBOFLAVIN) [Concomitant]
  7. VITAMIN C (ASCORBIC ACID) [Concomitant]
  8. LACTEC G (SORBIT HARTMAN) [Concomitant]

REACTIONS (1)
  - NASOPHARYNGITIS [None]
